FAERS Safety Report 5977680-2 (Version None)
Quarter: 2008Q4

REPORT INFORMATION
  Report Type: 
  Country: None (occurrence: None)
  Receive Date: 20081201
  Receipt Date: 20081201
  Transmission Date: 20090506
  Serious: No
  Sender: FDA-Public Use
  Company Number: None

PATIENT
  Age: 42 Year
  Sex: Female
  Weight: 117.9352 kg

DRUGS (1)
  1. ACTOS [Suspect]
     Indication: BLOOD GLUCOSE ABNORMAL
     Dosage: ONE DAILY
     Dates: start: 20081016, end: 20081111

REACTIONS (9)
  - DYSPNOEA [None]
  - FAECES DISCOLOURED [None]
  - FATIGUE [None]
  - GASTRIC DISORDER [None]
  - JOINT SWELLING [None]
  - OEDEMA PERIPHERAL [None]
  - ORAL PAIN [None]
  - SWELLING [None]
  - WEIGHT INCREASED [None]
